FAERS Safety Report 18979954 (Version 1)
Quarter: 2021Q1

REPORT INFORMATION
  Report Type: Spontaneous
  Country: US (occurrence: US)
  Receive Date: 20210305
  Receipt Date: 20210305
  Transmission Date: 20210420
  Serious: No
  Sender: FDA-Public Use
  Company Number: None

PATIENT
  Age: 52 Year
  Sex: Female
  Weight: 85.5 kg

DRUGS (9)
  1. VITAMIN D [Concomitant]
     Active Substance: VITAMIN D NOS
  2. CIPROFLOXACIN HCL 500MG TAB [Suspect]
     Active Substance: CIPROFLOXACIN
     Indication: URINARY TRACT INFECTION
     Route: 048
     Dates: start: 20200618, end: 20200622
  3. HUM BRAND CALCIUM/VITAMIN D [Concomitant]
  4. HUM BRAND VALERIAN SLEEP AID [Concomitant]
  5. POTASSIUM [Concomitant]
     Active Substance: POTASSIUM
  6. ACETAZOLAMIDE. [Concomitant]
     Active Substance: ACETAZOLAMIDE
  7. METOPROLOL TARTRATE. [Concomitant]
     Active Substance: METOPROLOL TARTRATE
  8. CASA DE SANTE BRAND LOW FODMAP [Concomitant]
  9. STELLAR LABS BRAND WOMENS MULTI?VITAMIN [Concomitant]

REACTIONS (6)
  - Clostridium difficile infection [None]
  - Gait disturbance [None]
  - Muscle tightness [None]
  - Tendonitis [None]
  - Arthralgia [None]
  - Tendon rupture [None]

NARRATIVE: CASE EVENT DATE: 20200618
